FAERS Safety Report 7714546-1 (Version None)
Quarter: 2011Q3

REPORT INFORMATION
  Report Type: 
  Country: None (occurrence: None)
  Receive Date: 20110823
  Receipt Date: 20110812
  Transmission Date: 20111222
  Serious: Yes (Hospitalization, Other)
  Sender: FDA-Public Use
  Company Number: CIP10001985

PATIENT
  Age: 70 Year
  Sex: Female
  Weight: 44.5 kg

DRUGS (42)
  1. VITAMIN D [Concomitant]
  2. ZYMAR [Concomitant]
  3. RESTORIL (CHLORMEZANONE) [Concomitant]
  4. PREMPRO [Concomitant]
  5. VOLTAREN [Concomitant]
  6. VICODIN [Concomitant]
  7. TEMAZEPAM [Concomitant]
  8. TRINSICON (ASCORBIC ACID, CYANOCOBALAMIN, CYANOCOBALAMIN WITH INTRINSI [Concomitant]
  9. OMEGA-3-ACID ETHYL ESTERS (LOVAZA) [Concomitant]
  10. CELEBREX [Concomitant]
  11. DETROL LA [Concomitant]
  12. MIACALCIN [Concomitant]
  13. ZOLPIDEM [Concomitant]
  14. SIMVASTATIN [Concomitant]
  15. ACTONEL [Suspect]
     Dosage: 35 MG ONCE WEEKLY, ORAL
     Route: 048
     Dates: start: 20040219, end: 20080328
  16. LIPITOR [Concomitant]
  17. CALCIUM CARBONATE [Concomitant]
  18. LEXAPRO [Concomitant]
  19. METHYLPREDISOLONE (METHYLPREDNISOLONE) [Concomitant]
  20. FLONASE [Concomitant]
  21. ACTONEL [Suspect]
     Dosage: 30 MG, DAILY, ORAL
     Route: 048
     Dates: start: 20060406
  22. WELLBUTRIN [Concomitant]
  23. ASCORBIC ACID [Concomitant]
  24. XANAX [Concomitant]
  25. ZESTRIL [Concomitant]
  26. MOVE FREE (CHONDROITIN SULFATE, GLUCOSAMINE) [Concomitant]
  27. FOSAMAX [Suspect]
     Indication: OSTEOPOROSIS
     Dosage: 70 MG ONCE WEEKLY, ORAL
     Route: 048
     Dates: start: 19980101, end: 20040219
  28. FOSAMAX [Suspect]
     Indication: OSTEOPOROSIS PROPHYLAXIS
     Dosage: 70 MG ONCE WEEKLY, ORAL
     Route: 048
     Dates: start: 19980101, end: 20040219
  29. BONIVA [Suspect]
     Dosage: 150 MG ONCE MONTHLY, ORAL
     Route: 048
     Dates: start: 20081023, end: 20090501
  30. MULTIVITAMIN [Concomitant]
  31. OXYGEN (OXYGEN) [Concomitant]
  32. OMEPRAZOLE [Concomitant]
  33. ACTONEL [Suspect]
     Dosage: 35 MG ONCE WEEKLY, ORAL
     Route: 048
     Dates: start: 20060406
  34. SINGULAIR [Concomitant]
  35. CELEXA [Concomitant]
  36. DITROPAN [Concomitant]
  37. HALCION [Concomitant]
  38. CO Q-10 (UBIDECARENONE) [Concomitant]
  39. SPIRIVA [Concomitant]
  40. COUMADIN [Concomitant]
  41. FEROCON (FERROUS FUMARATE, FOLIC ACID, VITAMIN-B-KOMPLEX STANDARD) [Concomitant]
  42. SANCTURA [Concomitant]

REACTIONS (32)
  - FEMUR FRACTURE [None]
  - RIB FRACTURE [None]
  - HIP FRACTURE [None]
  - GAIT DISTURBANCE [None]
  - VOMITING [None]
  - EMPHYSEMA [None]
  - DEHYDRATION [None]
  - FALL [None]
  - ROAD TRAFFIC ACCIDENT [None]
  - DIZZINESS [None]
  - LUMBAR RADICULOPATHY [None]
  - BALANCE DISORDER [None]
  - ATELECTASIS [None]
  - UPPER RESPIRATORY TRACT INFECTION [None]
  - ANAEMIA POSTOPERATIVE [None]
  - MUSCLE INJURY [None]
  - CONTUSION [None]
  - BONE DISORDER [None]
  - ECCHYMOSIS [None]
  - WEIGHT BEARING DIFFICULTY [None]
  - LOW TURNOVER OSTEOPATHY [None]
  - ARTHRALGIA [None]
  - ACTIVITIES OF DAILY LIVING IMPAIRED [None]
  - PROCEDURAL PAIN [None]
  - MUSCULAR WEAKNESS [None]
  - FEMORAL NECK FRACTURE [None]
  - DRUG INTOLERANCE [None]
  - PATELLOFEMORAL PAIN SYNDROME [None]
  - STRESS FRACTURE [None]
  - TRAUMATIC FRACTURE [None]
  - PAIN IN EXTREMITY [None]
  - BRONCHITIS CHRONIC [None]
